FAERS Safety Report 16961039 (Version 1)
Quarter: 2019Q4

REPORT INFORMATION
  Report Type: Spontaneous
  Country: GB (occurrence: GB)
  Receive Date: 20191025
  Receipt Date: 20191025
  Transmission Date: 20200122
  Serious: Yes (Death)
  Sender: FDA-Public Use
  Company Number: GB-ACCORD-158883

PATIENT
  Age: 57 Year
  Sex: Female
  Weight: 84.81 kg

DRUGS (2)
  1. METHOTREXATE. [Suspect]
     Active Substance: METHOTREXATE
     Indication: PRODUCT USED FOR UNKNOWN INDICATION
     Route: 058
     Dates: start: 2017, end: 20180608
  2. METHOTREXATE. [Suspect]
     Active Substance: METHOTREXATE
     Indication: PRODUCT USED FOR UNKNOWN INDICATION
     Dosage: ALSO RECEIVED SUBCUTANEOUS30MG  FR 2017 TO 8-JUN-18
     Dates: start: 20160608, end: 2017

REACTIONS (1)
  - Adenocarcinoma [Fatal]

NARRATIVE: CASE EVENT DATE: 20180220
